FAERS Safety Report 23853081 (Version 1)
Quarter: 2024Q2

REPORT INFORMATION
  Report Type: Spontaneous
  Country: US (occurrence: US)
  Receive Date: 20240514
  Receipt Date: 20240514
  Transmission Date: 20240716
  Serious: No
  Sender: FDA-Public Use
  Company Number: US-JNJFOC-20240522954

PATIENT
  Age: 55 Year
  Sex: Male

DRUGS (5)
  1. TYLENOL [Suspect]
     Active Substance: ACETAMINOPHEN
     Indication: Headache
     Route: 065
     Dates: start: 2024
  2. ADVIL [Concomitant]
     Active Substance: IBUPROFEN
     Indication: Headache
     Route: 065
     Dates: start: 2024
  3. UPTRAVI [Concomitant]
     Active Substance: SELEXIPAG
     Indication: Pulmonary arterial hypertension
     Dosage: STRENGTH: 200/800MC BY MOUTH.
     Route: 048
     Dates: start: 202403
  4. UPTRAVI [Concomitant]
     Active Substance: SELEXIPAG
     Dosage: INSTRUCTED TO TAKE 600 MCG AM DOSE AND 800 MCG PM DOSE STARTING TOMORROW
     Route: 048
     Dates: start: 202403
  5. OXYGEN [Concomitant]
     Active Substance: OXYGEN
     Indication: Product used for unknown indication
     Dosage: UTILIZE OXYGEN AT 2 LPM NASAL CANAL AT NIGHT AND 2-8 LPM NASAL CANAL WITH ACTIVITY
     Route: 045
     Dates: start: 2024

REACTIONS (1)
  - Product use in unapproved indication [Unknown]

NARRATIVE: CASE EVENT DATE: 20240101
